FAERS Safety Report 6461025-8 (Version None)
Quarter: 2009Q4

REPORT INFORMATION
  Report Type: 
  Country: None (occurrence: None)
  Receive Date: 20091130
  Receipt Date: 20091120
  Transmission Date: 20100525
  Serious: Yes (Other)
  Sender: FDA-Public Use
  Company Number: B0441803A

PATIENT
  Age: 33 Year
  Sex: Male

DRUGS (10)
  1. PLACEBO [Suspect]
     Indication: HIV INFECTION
     Route: 048
     Dates: start: 20060721, end: 20061013
  2. COMBIVIR [Suspect]
     Indication: HIV INFECTION
     Dosage: 1TAB TWICE PER DAY
     Dates: start: 20060914, end: 20061013
  3. EFAVIRENZ [Suspect]
     Indication: HIV INFECTION
     Dosage: 600MG PER DAY
     Dates: start: 20060914, end: 20061013
  4. PYRAZINAMIDE [Suspect]
     Dates: end: 20061004
  5. ETHAMBUTHOL [Suspect]
     Dates: end: 20061004
  6. FLUCONAZOLE [Suspect]
  7. RIFAMPICIN [Suspect]
     Dates: end: 20061010
  8. RIMACTAZID [Suspect]
     Dates: end: 20061010
  9. SULFOTRIM [Concomitant]
     Dates: end: 20061013
  10. PRIMPERAN TAB [Concomitant]

REACTIONS (3)
  - HEPATITIS [None]
  - PRURITUS [None]
  - VOMITING [None]
